FAERS Safety Report 5147681-5 (Version None)
Quarter: 2006Q4

REPORT INFORMATION
  Report Type: 
  Country: None (occurrence: None)
  Receive Date: 20061106
  Receipt Date: 20061025
  Transmission Date: 20070319
  Serious: Yes (Other)
  Sender: FDA-Public Use
  Company Number: 149209ISR

PATIENT
  Age: 24 Year
  Sex: Male

DRUGS (2)
  1. FLUOXETINE [Suspect]
     Indication: DEPRESSION
     Dosage: 20 MG (20 MG, 1 IN 1 D)
     Route: 048
     Dates: start: 20060822, end: 20060907
  2. ZOPICLONE [Suspect]
     Indication: INSOMNIA
     Dosage: 7.5 MG (7.5 MG, 1 IN 1 D)
     Route: 048
     Dates: start: 20060822, end: 20060902

REACTIONS (3)
  - BLOOD BLISTER [None]
  - OEDEMA PERIPHERAL [None]
  - VASCULITIS [None]
